FAERS Safety Report 14648135 (Version 1)
Quarter: 2018Q1

REPORT INFORMATION
  Report Type: Spontaneous
  Country: US (occurrence: US)
  Receive Date: 20180316
  Receipt Date: 20180316
  Transmission Date: 20180509
  Serious: Yes (Other)
  Sender: FDA-Public Use
  Company Number: PHEH2018US009607

PATIENT
  Sex: Female

DRUGS (1)
  1. RECLAST [Suspect]
     Active Substance: ZOLEDRONIC ACID
     Indication: PRODUCT USED FOR UNKNOWN INDICATION
     Route: 065

REACTIONS (7)
  - Dysphonia [Unknown]
  - Gingival swelling [Unknown]
  - Eye pain [Unknown]
  - Speech disorder [Unknown]
  - Abdominal pain upper [Unknown]
  - Angioedema [Unknown]
  - Tooth disorder [Unknown]
